FAERS Safety Report 7298671-8 (Version None)
Quarter: 2011Q1

REPORT INFORMATION
  Report Type: 
  Country: None (occurrence: None)
  Receive Date: 20110209
  Receipt Date: 20110126
  Transmission Date: 20110831
  Serious: Yes (Other)
  Sender: FDA-Public Use
  Company Number: 2011AP000144

PATIENT
  Age: 21 Year
  Sex: Female

DRUGS (19)
  1. VALPROIC ACID [Concomitant]
  2. CLONAZEPAM [Suspect]
     Indication: EPILEPSY
     Dosage: 0.25 MG;PRN
  3. CARBAMAZEPINE [Concomitant]
  4. TOPIRAMATE [Concomitant]
  5. LEVETIRACETAM [Suspect]
     Indication: EPILEPSY
     Dosage: 250 MG;BID
  6. ACETAZOLAMIDE [Concomitant]
  7. GABAPENTIN (GABAPENTNI) [Concomitant]
  8. LAMOTRIGINE [Concomitant]
  9. OXCARBAZEPINE [Concomitant]
  10. VIGABATRIN (VIGABATRIN) [Concomitant]
  11. ZONISAMIDE [Concomitant]
  12. CORTICOSTEROID NOS (CORTICOSTEROID NOS) [Concomitant]
  13. ACETAZOLAMIDE [Suspect]
     Indication: EPILEPSY
     Dosage: 125 MG;HS
  14. ACETAZOLAMIDE [Concomitant]
  15. CLOBAZAM (CLOBAZAM) [Concomitant]
  16. ETHOSUXIMIDE [Concomitant]
  17. PHENYTOIN [Concomitant]
  18. RUFINAMIDE (RUFINAMIDE) [Concomitant]
  19. LAMOTRIGINE [Suspect]
     Indication: EPILEPSY

REACTIONS (8)
  - FEELING ABNORMAL [None]
  - MUSCLE TWITCHING [None]
  - COGNITIVE DISORDER [None]
  - FEAR [None]
  - NERVOUSNESS [None]
  - SPEECH DISORDER [None]
  - FATIGUE [None]
  - GRAND MAL CONVULSION [None]
